FAERS Safety Report 20956893 (Version 1)
Quarter: 2022Q2

REPORT INFORMATION
  Report Type: Report from Study
  Country: US (occurrence: US)
  Receive Date: 20220614
  Receipt Date: 20220614
  Transmission Date: 20220721
  Serious: Yes (Other)
  Sender: FDA-Public Use
  Company Number: US-PFM-2020-21064

PATIENT

DRUGS (1)
  1. PROPRANOLOL HYDROCHLORIDE [Suspect]
     Active Substance: PROPRANOLOL HYDROCHLORIDE
     Indication: Infantile haemangioma
     Route: 048

REACTIONS (10)
  - Respiratory disorder [Unknown]
  - Seizure [Unknown]
  - Hypoglycaemia [Unknown]
  - Respiratory symptom [Unknown]
  - Gastrointestinal disorder [Unknown]
  - Bradycardia [Unknown]
  - Hypoglycaemia [Unknown]
  - Hypotension [Unknown]
  - Sleep disorder [Unknown]
  - Peripheral coldness [Unknown]
